FAERS Safety Report 19013944 (Version 1)
Quarter: 2021Q1

REPORT INFORMATION
  Report Type: Report from Study
  Country: CA (occurrence: CA)
  Receive Date: 20210316
  Receipt Date: 20210316
  Transmission Date: 20210420
  Serious: No
  Sender: FDA-Public Use
  Company Number: CA-JNJFOC-20210324438

PATIENT
  Age: 43 Year
  Sex: Male

DRUGS (1)
  1. REMICADE [Suspect]
     Active Substance: INFLIXIMAB
     Indication: CROHN^S DISEASE
     Route: 042
     Dates: start: 20130904

REACTIONS (3)
  - Product use issue [Unknown]
  - Off label use [Unknown]
  - Gastrointestinal neoplasm [Unknown]

NARRATIVE: CASE EVENT DATE: 20130904
